FAERS Safety Report 7898853-8 (Version None)
Quarter: 2011Q4

REPORT INFORMATION
  Report Type: 
  Country: None (occurrence: None)
  Receive Date: 20111107
  Receipt Date: 20111028
  Transmission Date: 20120403
  Serious: Yes (Other)
  Sender: FDA-Public Use
  Company Number: US-ASTRAZENECA-2011SE36635

PATIENT
  Age: 65 Year
  Sex: Female

DRUGS (4)
  1. NEXIUM [Suspect]
     Route: 048
  2. NEXIUM [Suspect]
     Dosage: DAILY
     Route: 048
  3. PRILOSEC [Suspect]
     Route: 048
  4. MIRALAX [Concomitant]

REACTIONS (13)
  - OESOPHAGEAL SPASM [None]
  - DIARRHOEA [None]
  - PNEUMONIA [None]
  - POLYP [None]
  - INCORRECT DOSE ADMINISTERED [None]
  - LOWER LIMB FRACTURE [None]
  - INTESTINAL OBSTRUCTION [None]
  - REGURGITATION [None]
  - MALAISE [None]
  - DRUG DOSE OMISSION [None]
  - GASTRITIS [None]
  - DRUG INEFFECTIVE [None]
  - PAIN [None]
